FAERS Safety Report 9377938 (Version 1)
Quarter: 2013Q3

REPORT INFORMATION
  Report Type: Spontaneous
  Country: AT (occurrence: AT)
  Receive Date: 20130701
  Receipt Date: 20130701
  Transmission Date: 20140515
  Serious: Yes (Hospitalization, Other)
  Sender: FDA-Public Use
  Company Number: AT-PFIZER INC-2013190773

PATIENT
  Age: 33 Year
  Sex: Female

DRUGS (16)
  1. EFECTIN ER [Suspect]
     Dosage: 75 MG, 1X/DAY
     Route: 048
     Dates: start: 20051206, end: 20051206
  2. EFECTIN ER [Suspect]
     Dosage: 150 MG, 1X/DAY
     Route: 048
     Dates: start: 20051207, end: 20051212
  3. EFECTIN ER [Suspect]
     Dosage: 225 MG, 1X/DAY
     Route: 048
     Dates: start: 20051213, end: 20051215
  4. EFECTIN ER [Suspect]
     Dosage: 150 MG, 1X/DAY
     Route: 048
     Dates: start: 20051216
  5. TEMESTA [Suspect]
     Dosage: 1.5 MG, 1X/DAY
     Route: 048
     Dates: start: 20051205, end: 20051205
  6. TEMESTA [Suspect]
     Dosage: 2 MG, 1X/DAY
     Route: 048
     Dates: start: 20051206, end: 20051206
  7. TEMESTA [Suspect]
     Dosage: 2.5 MG, 1X/DAY
     Route: 048
     Dates: start: 20051207, end: 20051208
  8. TEMESTA [Suspect]
     Dosage: 3.5 MG, 1X/DAY
     Route: 048
     Dates: start: 20051209, end: 20051209
  9. TEMESTA [Suspect]
     Dosage: 2.5 MG, 1X/DAY
     Route: 048
     Dates: start: 20051210, end: 20051212
  10. TEMESTA [Suspect]
     Dosage: 3.5 MG, 1X/DAY
     Route: 048
     Dates: start: 20051213, end: 20051213
  11. TEMESTA [Suspect]
     Dosage: 2.5 MG, 1X/DAY
     Route: 048
     Dates: start: 20051214, end: 20051215
  12. TEMESTA [Suspect]
     Dosage: 1.25 MG, 1X/DAY
     Route: 048
     Dates: start: 20051216
  13. DOMINAL ^ASTA^ [Suspect]
     Dosage: 80 MG, 1X/DAY
     Route: 048
     Dates: start: 20051207, end: 20051207
  14. DOMINAL ^ASTA^ [Suspect]
     Dosage: 80 MG, 1X/DAY
     Route: 048
     Dates: start: 20051209, end: 20051211
  15. DOMINAL ^ASTA^ [Suspect]
     Dosage: 40 MG, 1X/DAY
     Route: 048
     Dates: start: 20051213, end: 20051213
  16. EUTHYROX [Concomitant]
     Indication: HYPOTHYROIDISM
     Dosage: 75 UG, 1X/DAY
     Route: 048

REACTIONS (2)
  - Syncope [Recovered/Resolved]
  - Concussion [Unknown]
